FAERS Safety Report 4994738-5 (Version None)
Quarter: 2006Q2

REPORT INFORMATION
  Report Type: 
  Country: None (occurrence: None)
  Receive Date: 20060505
  Receipt Date: 20060313
  Transmission Date: 20061013
  Serious: Yes (Hospitalization)
  Sender: FDA-Public Use
  Company Number: US-ABBOTT-06P-163-0327710-00

PATIENT
  Sex: Male

DRUGS (16)
  1. NORVIR [Suspect]
     Indication: HIV INFECTION
     Route: 048
     Dates: start: 20060104, end: 20060214
  2. NORVIR [Suspect]
     Dates: start: 20060228
  3. TRUVADA [Suspect]
     Indication: HIV INFECTION
     Dosage: 200/300MG
     Route: 048
     Dates: start: 20060104, end: 20060214
  4. TRUVADA [Suspect]
     Dates: start: 20060228
  5. REYATAZ [Suspect]
     Indication: HIV INFECTION
     Route: 048
     Dates: start: 20060104, end: 20060214
  6. REYATAZ [Suspect]
     Dates: start: 20060228
  7. CLINDAMYCIN [Suspect]
     Indication: TOXOPLASMOSIS
     Dates: start: 20060119, end: 20060214
  8. DAPSONE [Concomitant]
     Indication: ANTIBIOTIC PROPHYLAXIS
     Dates: start: 20060119, end: 20060214
  9. FOLINIC ACID [Concomitant]
     Indication: TOXOPLASMOSIS
     Dates: start: 20060119, end: 20060214
  10. FOLINIC ACID [Concomitant]
     Dates: start: 20060219
  11. PYRIMETHAMINE TAB [Concomitant]
     Indication: TOXOPLASMOSIS
     Dates: start: 20060202, end: 20060214
  12. PYRIMETHAMINE TAB [Concomitant]
     Dates: start: 20060219
  13. PROCHLORPERAZINE EDISYLATE [Concomitant]
     Indication: NAUSEA
     Dates: start: 20060203, end: 20060214
  14. PROCHLORPERAZINE EDISYLATE [Concomitant]
     Indication: VOMITING
  15. ZITHROMAX [Concomitant]
     Indication: ANTIBIOTIC PROPHYLAXIS
     Dates: start: 20051209, end: 20060214
  16. ATOVAQUONE [Concomitant]
     Indication: DRUG USE FOR UNKNOWN INDICATION
     Dates: start: 20060219

REACTIONS (4)
  - DEHYDRATION [None]
  - NAUSEA [None]
  - TOXOPLASMOSIS [None]
  - VOMITING [None]
